FAERS Safety Report 5219923-9 (Version None)
Quarter: 2007Q1

REPORT INFORMATION
  Report Type: 
  Country: None (occurrence: None)
  Receive Date: 20070125
  Receipt Date: 20070117
  Transmission Date: 20070707
  Serious: Yes (Other)
  Sender: FDA-Public Use
  Company Number: DE-ABBOTT-07P-062-0356189-00

PATIENT
  Sex: Female
  Weight: 68 kg

DRUGS (2)
  1. HUMIRA [Suspect]
     Indication: RHEUMATOID ARTHRITIS
     Route: 058
     Dates: start: 20060727
  2. PREDNISOLONE [Concomitant]
     Indication: RHEUMATOID ARTHRITIS
     Dosage: 3-7.5 MG DAILY
     Route: 048
     Dates: start: 20060701

REACTIONS (2)
  - COMPUTERISED TOMOGRAM ABNORMAL [None]
  - NUCLEAR MAGNETIC RESONANCE IMAGING ABDOMINAL ABNORMAL [None]
